FAERS Safety Report 5663276-9 (Version None)
Quarter: 2008Q1

REPORT INFORMATION
  Report Type: 
  Country: None (occurrence: None)
  Receive Date: 20080310
  Receipt Date: 20080303
  Transmission Date: 20080703
  Serious: Yes (Death, Hospitalization)
  Sender: FDA-Public Use
  Company Number: 083-C5013-08011006

PATIENT
  Age: 66 Year
  Sex: Male
  Weight: 60 kg

DRUGS (4)
  1. CC-5013 (LENALIDOMIDE) (CAPSULES) [Suspect]
     Indication: MULTIPLE MYELOMA
     Dosage: 25 MG, DAILY, ORAL ; 25 MG, DAILY, ORAL
     Route: 048
     Dates: start: 20071127, end: 20071217
  2. CC-5013 (LENALIDOMIDE) (CAPSULES) [Suspect]
     Indication: MULTIPLE MYELOMA
     Dosage: 25 MG, DAILY, ORAL ; 25 MG, DAILY, ORAL
     Route: 048
     Dates: start: 20071224, end: 20080113
  3. MELPHALAN (MELPHALAN) [Suspect]
     Indication: DISEASE PROGRESSION
     Dosage: 30 IN TOTAL, INTRAVENOUS
     Route: 042
     Dates: start: 20080101, end: 20080101
  4. DEXAMETHASONE TAB [Concomitant]

REACTIONS (7)
  - APLASIA [None]
  - DISEASE PROGRESSION [None]
  - DRUG INEFFECTIVE [None]
  - FEBRILE NEUTROPENIA [None]
  - MULTIPLE MYELOMA [None]
  - PLASMACYTOMA [None]
  - RESPIRATORY FAILURE [None]
